FAERS Safety Report 8148002-6 (Version None)
Quarter: 2012Q1

REPORT INFORMATION
  Report Type: 
  Country: None (occurrence: None)
  Receive Date: 20120218
  Receipt Date: 20110506
  Transmission Date: 20120608
  Serious: No
  Sender: FDA-Public Use
  Company Number: US-ALLERGAN-1104857US

PATIENT
  Age: 47 Year
  Sex: Female

DRUGS (4)
  1. BOTOX COSMETIC [Suspect]
     Indication: SKIN WRINKLING
     Dosage: 30 UNITS, SINGLE
     Route: 030
     Dates: start: 20101201, end: 20101201
  2. FIORINAL [Concomitant]
     Indication: MIGRAINE
     Dosage: UNK
     Route: 048
  3. ALPHAGAN [Concomitant]
     Indication: EYELID PTOSIS
     Dosage: UNK
     Route: 047
     Dates: start: 20101201, end: 20101201
  4. CLARITIN [Concomitant]
     Indication: SEASONAL ALLERGY
     Dosage: 10 MG, QD
     Route: 048

REACTIONS (3)
  - VISUAL ACUITY REDUCED [None]
  - HEADACHE [None]
  - EYELID PTOSIS [None]
